FAERS Safety Report 21737254 (Version 1)
Quarter: 2022Q4

REPORT INFORMATION
  Report Type: Report from Study
  Country: US (occurrence: US)
  Receive Date: 20221216
  Receipt Date: 20221216
  Transmission Date: 20230112
  Serious: Yes (Hospitalization, Other)
  Sender: FDA-Public Use
  Company Number: US-SUN PHARMACEUTICAL INDUSTRIES LTD-2022R1-368795

PATIENT
  Weight: 2.4 kg

DRUGS (17)
  1. MORPHINE [Suspect]
     Active Substance: MORPHINE
     Dosage: UNK (100 UG)
     Route: 064
  2. MORPHINE [Suspect]
     Active Substance: MORPHINE
     Indication: Anaesthesia
  3. MORPHINE [Suspect]
     Active Substance: MORPHINE
  4. FENTANYL [Suspect]
     Active Substance: FENTANYL
     Dosage: UNK (15 UG)
     Route: 064
  5. FENTANYL [Suspect]
     Active Substance: FENTANYL
     Indication: Anaesthesia
  6. FENTANYL [Suspect]
     Active Substance: FENTANYL
  7. LABETALOL [Suspect]
     Active Substance: LABETALOL\LABETALOL HYDROCHLORIDE
     Indication: Non-compaction cardiomyopathy
     Dosage: UNK
     Route: 064
  8. WARFARIN [Suspect]
     Active Substance: WARFARIN
     Indication: Non-compaction cardiomyopathy
     Dosage: UNK
     Route: 064
  9. BUPIVACAINE [Suspect]
     Active Substance: BUPIVACAINE
     Dosage: UNK (1.6 ML 0.75%)
     Route: 064
  10. BUPIVACAINE [Suspect]
     Active Substance: BUPIVACAINE
     Indication: Anaesthesia
  11. BUPIVACAINE [Suspect]
     Active Substance: BUPIVACAINE
  12. OXYTOCIN [Suspect]
     Active Substance: OXYTOCIN
     Dosage: UNK
     Route: 064
  13. OXYTOCIN [Suspect]
     Active Substance: OXYTOCIN
     Indication: Labour induction
  14. OXYTOCIN [Suspect]
     Active Substance: OXYTOCIN
  15. PHENYLEPHRINE [Suspect]
     Active Substance: PHENYLEPHRINE HYDROCHLORIDE
     Dosage: UNK
     Route: 064
  16. PHENYLEPHRINE [Suspect]
     Active Substance: PHENYLEPHRINE HYDROCHLORIDE
     Indication: Product used for unknown indication
  17. PHENYLEPHRINE [Suspect]
     Active Substance: PHENYLEPHRINE HYDROCHLORIDE

REACTIONS (4)
  - Premature baby [Unknown]
  - Hypoglycaemia [Unknown]
  - Foetal exposure during pregnancy [Unknown]
  - Low birth weight baby [Unknown]
